FAERS Safety Report 10213081 (Version 1)
Quarter: 2014Q2

REPORT INFORMATION
  Report Type: Spontaneous
  Country: CA (occurrence: CA)
  Receive Date: 20140603
  Receipt Date: 20140603
  Transmission Date: 20141212
  Serious: Yes (Death, Hospitalization, Other)
  Sender: FDA-Public Use
  Company Number: CA-AMGEN INC.-CANSP2014038870

PATIENT
  Age: 87 Year
  Sex: Female

DRUGS (2)
  1. PROLIA [Suspect]
     Indication: OSTEOPOROSIS POSTMENOPAUSAL
     Dosage: 60 MG, UNK
     Route: 065
     Dates: start: 20121220
  2. LASIX                              /00032601/ [Concomitant]

REACTIONS (7)
  - Death [Fatal]
  - Diarrhoea [Unknown]
  - Renal failure [Unknown]
  - Blood test abnormal [Unknown]
  - Leukaemia [Unknown]
  - Lymphoma [Unknown]
  - Asthenia [Unknown]
